FAERS Safety Report 4784039-2 (Version None)
Quarter: 2005Q3

REPORT INFORMATION
  Report Type: 
  Country: None (occurrence: None)
  Receive Date: 20050930
  Receipt Date: 20050926
  Transmission Date: 20060218
  Serious: Yes (Death)
  Sender: FDA-Public Use
  Company Number: US-BOEHRINGER INGELHEIM PHARMACEUTICALS, INC.-2005-BP-16962BP

PATIENT

DRUGS (1)
  1. MIRAPEX [Suspect]
     Route: 048

REACTIONS (2)
  - DEATH [None]
  - METASTASES TO LIVER [None]
